FAERS Safety Report 9761836 (Version 1)
Quarter: 2013Q4

REPORT INFORMATION
  Report Type: Spontaneous
  Country: BG (occurrence: None)
  Receive Date: 20131213
  Receipt Date: 20131213
  Transmission Date: 20140711
  Serious: Yes (Life-Threatening, Hospitalization, Other)
  Sender: FDA-Public Use
  Company Number: SYM-2013-13954

PATIENT
  Age: 3 Month
  Sex: Female
  Weight: 5.3 kg

DRUGS (3)
  1. TIMOLOL MALEATE [Suspect]
     Indication: DEVELOPMENTAL GLAUCOMA
     Route: 047
  2. BRIMONIDINE TARTRATE [Concomitant]
  3. BRINZOLAMIDE (BRINZOLAMIDE) [Concomitant]

REACTIONS (26)
  - Off label use [None]
  - Depressed level of consciousness [None]
  - Toxicity to various agents [None]
  - Somnolence [None]
  - Apnoea [None]
  - Pallor [None]
  - Hypotension [None]
  - Slow response to stimuli [None]
  - Hypothermia [None]
  - Cyanosis [None]
  - Peripheral coldness [None]
  - Miosis [None]
  - Prolonged expiration [None]
  - Wheezing [None]
  - Hypopnoea [None]
  - Capillary nail refill test abnormal [None]
  - Hepatomegaly [None]
  - Stupor [None]
  - Hypotonia [None]
  - Hyporeflexia [None]
  - Lactic acidosis [None]
  - Sinus bradycardia [None]
  - Bronchial obstruction [None]
  - Cardiogenic shock [None]
  - Lethargy [None]
  - Bradypnoea [None]
